FAERS Safety Report 14985237 (Version 2)
Quarter: 2018Q3

REPORT INFORMATION
  Report Type: Report from Study
  Country: CA (occurrence: CA)
  Receive Date: 20180607
  Receipt Date: 20180817
  Transmission Date: 20181010
  Serious: Yes (Death)
  Sender: FDA-Public Use
  Company Number: CA-HLSUS-2018-CA-000856

PATIENT
  Age: 74 Year
  Sex: Male

DRUGS (6)
  1. CLOZAPINE. [Suspect]
     Active Substance: CLOZAPINE
     Indication: PRODUCT USED FOR UNKNOWN INDICATION
  2. LEVOSULPIRIDE [Concomitant]
     Active Substance: LEVOSULPIRIDE
     Dosage: 25MG OD
  3. HYDROMORPHONE [Concomitant]
     Active Substance: HYDROMORPHONE
     Dosage: 2MG ONCE EVERY 4 DAYS
  4. SYNTHROID [Concomitant]
     Active Substance: LEVOTHYROXINE SODIUM
     Dosage: 175.0 MICROGRAM OD
  5. QUETIAPINE. [Concomitant]
     Active Substance: QUETIAPINE
     Dosage: 12.5MG I EVERY 4 DAYS
  6. TYLENOL [Concomitant]
     Active Substance: ACETAMINOPHEN
     Dosage: 1G ONCE EVERY 5 DAYS

REACTIONS (1)
  - Death [Fatal]
